FAERS Safety Report 8686557 (Version 2)
Quarter: 2013Q4

REPORT INFORMATION
  Report Type: Spontaneous
  Country: US (occurrence: US)
  Receive Date: 20120726
  Receipt Date: 20131101
  Transmission Date: 20140711
  Serious: No
  Sender: FDA-Public Use
  Company Number: US-009507513-1207USA002814

PATIENT
  Sex: Female

DRUGS (1)
  1. CLARINEX [Suspect]
     Indication: ASTHMA
     Dosage: 1 DF, Q12H
     Route: 048
     Dates: start: 20111228

REACTIONS (3)
  - Drug prescribing error [Unknown]
  - Overdose [Unknown]
  - No adverse event [Unknown]
